FAERS Safety Report 7516140-4 (Version None)
Quarter: 2011Q2

REPORT INFORMATION
  Report Type: 
  Country: None (occurrence: None)
  Receive Date: 20110601
  Receipt Date: 20110523
  Transmission Date: 20111010
  Serious: Yes (Other)
  Sender: FDA-Public Use
  Company Number: FR-ROCHE-778911

PATIENT

DRUGS (3)
  1. PEG-INTRON [Suspect]
     Dosage: STOPPED
     Route: 065
  2. RIBAVIRIN [Suspect]
     Dosage: STOPPED
     Route: 065
  3. INTERFERON ALFA [Suspect]
     Dosage: STOPPED
     Route: 065

REACTIONS (3)
  - RETINOPATHY [None]
  - HYPERTHYROIDISM [None]
  - DEPRESSION [None]
